FAERS Safety Report 16692503 (Version 1)
Quarter: 2019Q4

REPORT INFORMATION
  Report Type: Spontaneous
  Country: US (occurrence: US)
  Receive Date: 20190809
  Receipt Date: 20190809
  Transmission Date: 20200122
  Serious: Yes (Hospitalization)
  Sender: FDA-Public Use
  Company Number: None

PATIENT
  Age: 35 Year
  Sex: Female
  Weight: 56.25 kg

DRUGS (8)
  1. GILENYA [Concomitant]
     Active Substance: FINGOLIMOD HYDROCHLORIDE
  2. MAGNESIUM [Concomitant]
     Active Substance: MAGNESIUM
  3. GILDESS [Concomitant]
     Active Substance: ETHINYL ESTRADIOL\NORETHINDRONE ACETATE
  4. VITAMIN D [Concomitant]
     Active Substance: VITAMIN D NOS
  5. REMERON [Concomitant]
     Active Substance: MIRTAZAPINE
  6. BORON. [Concomitant]
     Active Substance: BORON
  7. FINGOLIMOD .5 MG [Suspect]
     Active Substance: FINGOLIMOD
     Indication: MULTIPLE SCLEROSIS
     Dates: start: 20100101, end: 20121130
  8. FISH OIL [Concomitant]
     Active Substance: FISH OIL

REACTIONS (5)
  - Multiple sclerosis [None]
  - Central nervous system lesion [None]
  - Nystagmus [None]
  - Dizziness [None]
  - Gait inability [None]

NARRATIVE: CASE EVENT DATE: 20130701
